FAERS Safety Report 5430831-0 (Version None)
Quarter: 2007Q3

REPORT INFORMATION
  Report Type: 
  Country: None (occurrence: None)
  Receive Date: 20070830
  Receipt Date: 20061207
  Transmission Date: 20080115
  Serious: No
  Sender: FDA-Public Use
  Company Number: A0630786A

PATIENT
  Age: 24 Year
  Sex: Female

DRUGS (3)
  1. WELLBUTRIN XL [Suspect]
     Indication: DEPRESSION
     Dosage: 300MG PER DAY
     Route: 048
     Dates: start: 20061104
  2. BIRTH CONTROL [Concomitant]
  3. SINGULAIR [Concomitant]

REACTIONS (2)
  - INSOMNIA [None]
  - IRRITABILITY [None]
